FAERS Safety Report 15712869 (Version 1)
Quarter: 2018Q4

REPORT INFORMATION
  Report Type: Spontaneous
  Country: US (occurrence: US)
  Receive Date: 20181211
  Receipt Date: 20181211
  Transmission Date: 20190205
  Serious: Yes (Other)
  Sender: FDA-Public Use
  Company Number: None

PATIENT
  Age: 69 Year
  Sex: Female
  Weight: 101.47 kg

DRUGS (8)
  1. CAPECITABINE. [Suspect]
     Active Substance: CAPECITABINE
     Indication: BILE DUCT CANCER
     Route: 048
     Dates: start: 20180620
  2. ATORVASTATIN CALCIUM. [Concomitant]
     Active Substance: ATORVASTATIN CALCIUM
  3. METOPROLOL SUCCINATE. [Concomitant]
     Active Substance: METOPROLOL SUCCINATE
  4. VITAMIN D [Concomitant]
     Active Substance: CHOLECALCIFEROL
  5. XARELTO [Concomitant]
     Active Substance: RIVAROXABAN
  6. FLUTICASONE NASAL SPRAY [Concomitant]
     Active Substance: FLUTICASONE
  7. LISINOPRIL. [Concomitant]
     Active Substance: LISINOPRIL
  8. METFORMIN [Concomitant]
     Active Substance: METFORMIN HYDROCHLORIDE

REACTIONS (2)
  - Neutropenia [None]
  - Fatigue [None]

NARRATIVE: CASE EVENT DATE: 20181211
